FAERS Safety Report 22063831 (Version 2)
Quarter: 2023Q1

REPORT INFORMATION
  Report Type: Spontaneous
  Country: US (occurrence: US)
  Receive Date: 20230306
  Receipt Date: 20230314
  Transmission Date: 20230417
  Serious: No
  Sender: FDA-Public Use
  Company Number: US-AMGEN-USASP2023035842

PATIENT
  Age: 62 Year
  Sex: Male
  Weight: 56.6 kg

DRUGS (9)
  1. NEULASTA [Suspect]
     Active Substance: PEGFILGRASTIM
     Indication: Neutropenia
     Dosage: UNK
     Route: 065
  2. NEULASTA [Suspect]
     Active Substance: PEGFILGRASTIM
     Dosage: UNK
     Route: 065
  3. IMFINZI [Concomitant]
     Active Substance: DURVALUMAB
     Indication: Product used for unknown indication
  4. IMFINZI [Concomitant]
     Active Substance: DURVALUMAB
     Route: 065
  5. CISPLATIN [Concomitant]
     Active Substance: CISPLATIN
     Indication: Product used for unknown indication
     Dosage: UNK
  6. CISPLATIN [Concomitant]
     Active Substance: CISPLATIN
     Route: 065
  7. GEMCITABINE [Concomitant]
     Active Substance: GEMCITABINE
     Indication: Product used for unknown indication
  8. GEMCITABINE [Concomitant]
     Active Substance: GEMCITABINE
     Route: 065
  9. DURVALUMAB [Concomitant]
     Active Substance: DURVALUMAB
     Indication: Product used for unknown indication
     Route: 065

REACTIONS (2)
  - Intercepted product preparation error [Unknown]
  - Product dose omission issue [Unknown]

NARRATIVE: CASE EVENT DATE: 20230220
